FAERS Safety Report 8823304 (Version 2)
Quarter: 2012Q4

REPORT INFORMATION
  Report Type: 
  Country: US (occurrence: US)
  Receive Date: 20121003
  Receipt Date: 20121019
  Transmission Date: 20130627
  Serious: Yes (Death)
  Sender: FDA-Public Use
  Company Number: US-CELGENEUS-163-21880-12100177

PATIENT
  Age: 76 Year
  Sex: Male
  Weight: 83.08 kg

DRUGS (10)
  1. REVLIMID [Suspect]
     Indication: MULTIPLE MYELOMA
     Dosage: 25 Milligram
     Route: 048
     Dates: start: 20110503, end: 20120605
  2. CENTRUM SILVER [Concomitant]
     Indication: DRUG USE FOR UNKNOWN INDICATION
     Dosage: 500-250mcg
     Route: 048
  3. COMBIGAN [Concomitant]
     Indication: DRUG USE FOR UNKNOWN INDICATION
     Dosage: 0.2%-0.5%
     Route: 047
  4. FLOMAX [Concomitant]
     Indication: DRUG USE FOR UNKNOWN INDICATION
     Dosage: .4 Milligram
     Route: 048
  5. PERCOCET [Concomitant]
     Indication: PAIN
     Dosage: 5mg-325mg
     Route: 048
  6. PRILOSEC [Concomitant]
     Indication: DRUG USE FOR UNKNOWN INDICATION
     Dosage: 20 Milligram
     Route: 048
  7. QUESTRAN [Concomitant]
     Indication: DRUG USE FOR UNKNOWN INDICATION
     Dosage: 8 Gram
     Route: 048
  8. TIMOLOL MALEATE [Concomitant]
     Indication: DRUG USE FOR UNKNOWN INDICATION
     Dosage: 0.25%
     Route: 047
  9. VELCADE [Concomitant]
     Indication: DRUG USE FOR UNKNOWN INDICATION
     Dosage: 1.3 milligram/sq. meter
     Route: 041
  10. XALATAN [Concomitant]
     Indication: DRUG USE FOR UNKNOWN INDICATION
     Dosage: 0.005%
     Route: 047

REACTIONS (1)
  - Plasma cell myeloma [Fatal]
